FAERS Safety Report 8249340-9 (Version None)
Quarter: 2012Q2

REPORT INFORMATION
  Report Type: 
  Country: None (occurrence: None)
  Receive Date: 20120402
  Receipt Date: 20120321
  Transmission Date: 20120825
  Serious: Yes (Hospitalization)
  Sender: FDA-Public Use
  Company Number: IT-JNJFOC-20120210641

PATIENT
  Sex: Female
  Weight: 44.8 kg

DRUGS (1)
  1. REMICADE [Suspect]
     Indication: CROHN'S DISEASE
     Route: 042
     Dates: start: 20120130

REACTIONS (5)
  - ABDOMINAL PAIN [None]
  - PANCREATIC ENZYMES INCREASED [None]
  - ANAEMIA [None]
  - HAEMATOCHEZIA [None]
  - DIARRHOEA [None]
